FAERS Safety Report 8060236-8 (Version None)
Quarter: 2012Q1

REPORT INFORMATION
  Report Type: 
  Country: None (occurrence: None)
  Receive Date: 20120120
  Receipt Date: 20120113
  Transmission Date: 20120608
  Serious: Yes (Death, Other)
  Sender: FDA-Public Use
  Company Number: GB-ABBOTT-12P-167-0893241-00

PATIENT
  Age: 85 Year
  Sex: Male
  Weight: 61 kg

DRUGS (4)
  1. PERINDOPRIL [Suspect]
     Indication: HYPERTENSION
     Route: 048
     Dates: start: 20111103, end: 20111113
  2. BENDROFLUMETHIAZIDE [Concomitant]
     Indication: PRODUCT USED FOR UNKNOWN INDICATION
     Dates: end: 20111107
  3. CETIRIZINE [Concomitant]
     Indication: PRODUCT USED FOR UNKNOWN INDICATION
     Dates: start: 20110601
  4. PERINDOPRIL [Suspect]
     Route: 048
     Dates: start: 20111114

REACTIONS (2)
  - BLOOD SODIUM DECREASED [None]
  - SUDDEN DEATH [None]
